FAERS Safety Report 21377071 (Version 2)
Quarter: 2022Q3

REPORT INFORMATION
  Report Type: Report from Study
  Country: KR (occurrence: KR)
  Receive Date: 20220926
  Receipt Date: 20220926
  Transmission Date: 20221026
  Serious: Yes (Hospitalization)
  Sender: FDA-Public Use
  Company Number: KR-ELI_LILLY_AND_COMPANY-KR202206005920

PATIENT
  Age: 55 Year
  Sex: Male

DRUGS (12)
  1. ABEMACICLIB [Suspect]
     Active Substance: ABEMACICLIB
     Indication: Gastric cancer
     Dosage: 200 MG, UNKNOWN
     Route: 048
     Dates: start: 20220419, end: 20220715
  2. PACLITAXEL [Concomitant]
     Active Substance: PACLITAXEL
     Indication: Gastric cancer
     Dosage: 60 MG/M2, UNKNOWN
     Route: 042
     Dates: start: 20220419, end: 20220602
  3. TAZOLACTAM [Concomitant]
     Indication: Prophylaxis
     Dosage: UNK, UNKNOWN
     Route: 042
     Dates: start: 20220608, end: 20220611
  4. DULCOLAX-S [Concomitant]
     Indication: Constipation
     Dosage: UNK, DAILY
     Route: 048
     Dates: start: 20220519
  5. LANSOPRAZOLE [Concomitant]
     Active Substance: LANSOPRAZOLE
     Indication: Gastritis
     Dosage: 15 MG, UNKNOWN
     Route: 048
     Dates: start: 20220608, end: 20220611
  6. BOLGRE [Concomitant]
     Indication: Anaemia
     Dosage: 10 ML, UNKNOWN
     Route: 048
     Dates: start: 20220608, end: 20220611
  7. LOPERAMIDE [Concomitant]
     Active Substance: LOPERAMIDE
     Indication: Diarrhoea
     Dosage: 2 MG, UNKNOWN
     Route: 048
     Dates: start: 20220608, end: 20220609
  8. LASIX [Concomitant]
     Active Substance: FUROSEMIDE
     Indication: Oedema
     Dosage: UNK UNK, UNKNOWN
     Route: 042
     Dates: start: 20220609
  9. CYMBALTA [Concomitant]
     Active Substance: DULOXETINE HYDROCHLORIDE
     Indication: Peripheral sensory neuropathy
     Dosage: 30 MG, DAILY
     Route: 048
     Dates: start: 20220331
  10. GASOCOL [Concomitant]
     Indication: Gastritis
     Dosage: 20 MG, UNKNOWN
     Route: 048
     Dates: start: 20220610
  11. LYRICA [Concomitant]
     Active Substance: PREGABALIN
     Indication: Peripheral sensory neuropathy
     Dosage: 75 MG, BID
     Route: 048
     Dates: start: 20220331
  12. AMINO ACIDS\DEXTROSE\ELECTROLYTES NOS\SOYBEAN OIL\VITAMINS [Concomitant]
     Active Substance: AMINO ACIDS\DEXTROSE\ELECTROLYTES NOS\SOYBEAN OIL\VITAMINS
     Indication: Anaemia
     Dosage: 1450 ML, UNKNOWN
     Route: 042
     Dates: start: 20220608, end: 20220610

REACTIONS (1)
  - Anaemia [Recovering/Resolving]

NARRATIVE: CASE EVENT DATE: 20220608
